FAERS Safety Report 16105050 (Version 1)
Quarter: 2019Q2

REPORT INFORMATION
  Report Type: Spontaneous
  Country: US (occurrence: US)
  Receive Date: 20190321
  Receipt Date: 20190321
  Transmission Date: 20190711
  Serious: Yes (Life-Threatening, Hospitalization)
  Sender: FDA-Public Use
  Company Number: None

PATIENT
  Age: 67 Year
  Sex: Male
  Weight: 106.2 kg

DRUGS (16)
  1. BUSPIRONE [Suspect]
     Active Substance: BUSPIRONE HYDROCHLORIDE
     Indication: ANXIETY
     Dosage: ?          QUANTITY:1 TABLET(S);?
     Route: 048
     Dates: start: 20190311, end: 20190318
  2. NAMENDA [Concomitant]
     Active Substance: MEMANTINE HYDROCHLORIDE
  3. METOPROLOL. [Concomitant]
     Active Substance: METOPROLOL
  4. XARELTO [Concomitant]
     Active Substance: RIVAROXABAN
  5. MULTAQ [Concomitant]
     Active Substance: DRONEDARONE
  6. TRINTELLIX [Suspect]
     Active Substance: VORTIOXETINE HYDROBROMIDE
     Indication: DEPRESSION
     Route: 048
  7. VASCEPA [Concomitant]
     Active Substance: ICOSAPENT ETHYL
  8. PRALUENT [Concomitant]
     Active Substance: ALIROCUMAB
  9. RANEXA [Concomitant]
     Active Substance: RANOLAZINE
  10. TRINTELLIX [Concomitant]
     Active Substance: VORTIOXETINE HYDROBROMIDE
  11. LISINOPRIL. [Concomitant]
     Active Substance: LISINOPRIL
  12. PLAVIX [Concomitant]
     Active Substance: CLOPIDOGREL BISULFATE
  13. PACEMAKER [Concomitant]
  14. TRINTELLIX [Suspect]
     Active Substance: VORTIOXETINE HYDROBROMIDE
     Indication: DEPRESSION
     Dosage: ?          QUANTITY:1 TABLET(S);?
     Route: 048
  15. ZETIA [Concomitant]
     Active Substance: EZETIMIBE
  16. TORSEMIDE. [Concomitant]
     Active Substance: TORSEMIDE

REACTIONS (10)
  - Blood pressure decreased [None]
  - Paraesthesia [None]
  - Limb injury [None]
  - Skin laceration [None]
  - Face injury [None]
  - Hyperhidrosis [None]
  - Product prescribing issue [None]
  - Loss of consciousness [None]
  - Feeling cold [None]
  - Blood pressure fluctuation [None]

NARRATIVE: CASE EVENT DATE: 20190315
